FAERS Safety Report 20565359 (Version 2)
Quarter: 2023Q1

REPORT INFORMATION
  Report Type: Spontaneous
  Country: US (occurrence: US)
  Receive Date: 20220308
  Receipt Date: 20230228
  Transmission Date: 20230417
  Serious: No
  Sender: FDA-Public Use
  Company Number: US-ALLERGAN-2143393US

PATIENT
  Sex: Female

DRUGS (1)
  1. ESTRADIOL [Suspect]
     Active Substance: ESTRADIOL
     Indication: Vulvovaginal pruritus
     Dosage: EVERYDAY FOR 2 WEEKS THEN TWICE A WEEK
     Dates: start: 20211202

REACTIONS (6)
  - Wrong technique in product usage process [Unknown]
  - Condition aggravated [Unknown]
  - Vulvovaginal pruritus [Unknown]
  - Drug ineffective [Unknown]
  - Product design issue [Unknown]
  - Product primary packaging issue [Unknown]
